FAERS Safety Report 5970518-9 (Version None)
Quarter: 2008Q4

REPORT INFORMATION
  Report Type: 
  Country: None (occurrence: None)
  Receive Date: 20081126
  Receipt Date: 20081028
  Transmission Date: 20090506
  Serious: No
  Sender: FDA-Public Use
  Company Number: US-ABBOTT-08P-163-0484525-00

PATIENT
  Sex: Female

DRUGS (12)
  1. SIMCOR [Suspect]
     Indication: BLOOD TRIGLYCERIDES INCREASED
     Dosage: 1000MG/20MG AT BEDTIME
     Route: 048
     Dates: start: 20081025
  2. IBUPROFEN TABLETS [Concomitant]
     Indication: DRUG USE FOR UNKNOWN INDICATION
     Dosage: 200 MG AT BEDTIME
     Route: 048
  3. MELOXICAM [Concomitant]
     Indication: DRUG USE FOR UNKNOWN INDICATION
  4. IRON RUTIN [Concomitant]
     Indication: DRUG USE FOR UNKNOWN INDICATION
  5. POTASSIUM CHLORIDE [Concomitant]
     Indication: DRUG USE FOR UNKNOWN INDICATION
  6. CALCIUM [Concomitant]
     Indication: DRUG USE FOR UNKNOWN INDICATION
  7. ERGOCALCIFEROL [Concomitant]
     Indication: DRUG USE FOR UNKNOWN INDICATION
  8. FISH OIL [Concomitant]
     Indication: DRUG USE FOR UNKNOWN INDICATION
  9. TOLTERODINE [Concomitant]
     Indication: DRUG USE FOR UNKNOWN INDICATION
  10. CONJUGATED ESTROGENS [Concomitant]
     Indication: DRUG USE FOR UNKNOWN INDICATION
  11. CIRRUS [Concomitant]
     Indication: DRUG USE FOR UNKNOWN INDICATION
  12. TRAZODONE HCL [Concomitant]
     Indication: DRUG USE FOR UNKNOWN INDICATION

REACTIONS (3)
  - DYSPEPSIA [None]
  - FLUSHING [None]
  - PARAESTHESIA [None]
